FAERS Safety Report 5170822-0 (Version None)
Quarter: 2006Q4

REPORT INFORMATION
  Report Type: 
  Country: None (occurrence: None)
  Receive Date: 20061205
  Receipt Date: 20061205
  Transmission Date: 20070319
  Serious: Yes (Life-Threatening)
  Sender: FDA-Public Use
  Company Number: None

PATIENT
  Age: 32 Year
  Sex: Female
  Weight: 82.5547 kg

DRUGS (1)
  1. MEDROXYPROGESTERONE [Suspect]
     Indication: UTERINE DILATION AND CURETTAGE
     Dosage: 2 TABLETS DAILY PO
     Route: 048
     Dates: start: 20061129, end: 20061130

REACTIONS (3)
  - CHEST PAIN [None]
  - NECK PAIN [None]
  - PULMONARY EMBOLISM [None]
